FAERS Safety Report 8784456 (Version 1)
Quarter: 2012Q4

REPORT INFORMATION
  Report Type: 
  Country: US (occurrence: US)
  Receive Date: 20120913
  Receipt Date: 20120913
  Transmission Date: 20130627
  Serious: Yes (Hospitalization, Other)
  Sender: FDA-Public Use
  Company Number: US-PFIZER INC-2012223694

PATIENT
  Age: 35 Year
  Sex: Female
  Weight: 79.37 kg

DRUGS (2)
  1. XANAX [Suspect]
     Dosage: UNK
     Dates: end: 1987
  2. VALIUM [Suspect]
     Dosage: UNK
     Dates: end: 1987

REACTIONS (1)
  - Drug dependence [Recovering/Resolving]
